FAERS Safety Report 22139714 (Version 1)
Quarter: 2023Q1

REPORT INFORMATION
  Report Type: Spontaneous
  Country: SE (occurrence: SE)
  Receive Date: 20230327
  Receipt Date: 20230327
  Transmission Date: 20230418
  Serious: Yes (Hospitalization)
  Sender: FDA-Public Use
  Company Number: None

PATIENT
  Age: 66 Year
  Sex: Female

DRUGS (7)
  1. OXALIPLATIN [Suspect]
     Active Substance: OXALIPLATIN
     Indication: Rectal cancer
     Dosage: UNK
     Route: 042
     Dates: start: 20230112
  2. POLYETHYLENE GLYCOL 4000 [Concomitant]
     Active Substance: POLYETHYLENE GLYCOL 4000
     Dosage: UNK, PRN,1 DOSE BAG X 1-3
     Dates: start: 20221205
  3. MIRTAZAPINE [Concomitant]
     Active Substance: MIRTAZAPINE
     Dosage: UNK, PRN, 0.5-1
     Dates: start: 20220423
  4. ZOLPIDEM TARTRATE [Concomitant]
     Active Substance: ZOLPIDEM TARTRATE
     Dosage: 1 DF, PRN
     Dates: start: 20190416
  5. LOPERAMIDE HYDROCHLORIDE [Concomitant]
     Active Substance: LOPERAMIDE HYDROCHLORIDE
     Dosage: UNK, PRN, 1-2 CAPSULE
     Dates: start: 20221202
  6. POTASSIUM CHLORIDE [Concomitant]
     Active Substance: POTASSIUM CHLORIDE
     Dosage: 750 MG, QD
     Dates: start: 20230111
  7. INOLAXOL [STERCULIA URENS GUM] [Concomitant]
     Dosage: 1 DF, PRN
     Dates: start: 20221219

REACTIONS (1)
  - Hypertonia [Recovering/Resolving]

NARRATIVE: CASE EVENT DATE: 20230112
